FAERS Safety Report 13445977 (Version 1)
Quarter: 2017Q2

REPORT INFORMATION
  Report Type: Spontaneous
  Country: US (occurrence: US)
  Receive Date: 20170417
  Receipt Date: 20170417
  Transmission Date: 20170830
  Serious: Yes (Other)
  Sender: FDA-Public Use
  Company Number: US-JNJFOC-20060404963

PATIENT
  Age: 34 Month
  Sex: Female
  Weight: 11.5 kg

DRUGS (1)
  1. DIPHENHYDRAMINE. [Suspect]
     Active Substance: DIPHENHYDRAMINE
     Indication: PRODUCT USED FOR UNKNOWN INDICATION
     Dosage: FREQUENCY X 1
     Route: 048

REACTIONS (6)
  - Generalised tonic-clonic seizure [Unknown]
  - Accidental exposure to product by child [Unknown]
  - Aphasia [Unknown]
  - Psychomotor hyperactivity [Unknown]
  - Ataxia [Unknown]
  - Irritability [Unknown]
